FAERS Safety Report 9192278 (Version 1)
Quarter: 2013Q1

REPORT INFORMATION
  Report Type: Spontaneous
  Country: JP (occurrence: JP)
  Receive Date: 20130327
  Receipt Date: 20130327
  Transmission Date: 20140127
  Serious: No
  Sender: FDA-Public Use
  Company Number: JP-JNJFOC-20130310646

PATIENT
  Sex: Male

DRUGS (7)
  1. DUROTEP MT [Suspect]
     Indication: BACK PAIN
     Route: 062
  2. DUROTEP MT [Suspect]
     Indication: BACK PAIN
     Route: 062
  3. DUROTEP MT [Suspect]
     Indication: BACK PAIN
     Route: 062
  4. DUROTEP MT [Suspect]
     Indication: MUSCULOSKELETAL PAIN
     Route: 062
  5. DUROTEP MT [Suspect]
     Indication: MUSCULOSKELETAL PAIN
     Route: 062
  6. DUROTEP MT [Suspect]
     Indication: MUSCULOSKELETAL PAIN
     Route: 062
  7. CELECOX [Concomitant]
     Route: 048

REACTIONS (3)
  - Asthenia [Unknown]
  - Abdominal pain [Not Recovered/Not Resolved]
  - Treatment noncompliance [Unknown]
